FAERS Safety Report 9313171 (Version 1)
Quarter: 2013Q2

REPORT INFORMATION
  Report Type: Spontaneous
  Country: US (occurrence: US)
  Receive Date: 20130528
  Receipt Date: 20130528
  Transmission Date: 20140414
  Serious: No
  Sender: FDA-Public Use
  Company Number: US-ABBOTT-12P-163-1014266-00

PATIENT
  Age: 71 Year
  Sex: Male
  Weight: 86.26 kg

DRUGS (9)
  1. ANDROGEL [Suspect]
     Indication: BLOOD TESTOSTERONE DECREASED
     Dosage: ONE PUMP ACTUATION PER DAY
     Dates: start: 201210
  2. ANDROGEL [Suspect]
     Dosage: 6 PUMP ACTUATIONS PER DAY
     Dates: end: 201210
  3. PERCOCET [Concomitant]
     Indication: BACK PAIN
  4. XANAX [Concomitant]
     Indication: ANXIETY
  5. LOSARTAN HCT [Concomitant]
     Indication: HYPERTENSION
  6. TERAZOSIN [Concomitant]
     Indication: HYPERTENSION
  7. CYCLOBENZAPRINE [Concomitant]
     Indication: SLEEP DISORDER THERAPY
  8. VITAMINE B1 [Concomitant]
     Indication: SUPPLEMENTATION THERAPY
  9. GABAPENTIN [Concomitant]
     Indication: PAIN IN EXTREMITY

REACTIONS (1)
  - Drug ineffective [Not Recovered/Not Resolved]
